FAERS Safety Report 7042319-4 (Version None)
Quarter: 2010Q4

REPORT INFORMATION
  Report Type: 
  Country: None (occurrence: None)
  Receive Date: 20101013
  Receipt Date: 20100422
  Transmission Date: 20110411
  Serious: Yes (Hospitalization)
  Sender: FDA-Public Use
  Company Number: US-ASTRAZENECA-2010SE17976

PATIENT
  Age: 18206 Day
  Sex: Male
  Weight: 70.3 kg

DRUGS (5)
  1. SYMBICORT [Suspect]
     Indication: ASTHMA
     Dosage: 160/4.5 TWO PUFFS BID
     Route: 055
  2. TOPROL-XL [Concomitant]
     Indication: HYPERTENSION
  3. NORVASC [Concomitant]
     Indication: HYPERTENSION
  4. HYZAAR [Concomitant]
     Indication: HYPERTENSION
  5. COMBIVENT [Concomitant]
     Indication: ASTHMA
     Dosage: AS REQUIRED

REACTIONS (2)
  - ASTHMA [None]
  - DRUG INEFFECTIVE [None]
